FAERS Safety Report 7086604-9 (Version None)
Quarter: 2010Q4

REPORT INFORMATION
  Report Type: 
  Country: None (occurrence: None)
  Receive Date: 20101105
  Receipt Date: 20100908
  Transmission Date: 20110411
  Serious: No
  Sender: FDA-Public Use
  Company Number: US-TYCO HEALTHCARE/MALLINCKRODT-T201001949

PATIENT
  Age: 85 Year
  Sex: Female

DRUGS (2)
  1. PENNSAID [Suspect]
     Indication: ARTHRALGIA
     Dosage: 40 GTT, Q8
     Route: 061
     Dates: start: 20100903, end: 20100907
  2. THYROID PREPARATIONS [Concomitant]
     Indication: THYROID DISORDER
     Dosage: UNK

REACTIONS (1)
  - JOINT SWELLING [None]
